FAERS Safety Report 6960509-3 (Version None)
Quarter: 2010Q3

REPORT INFORMATION
  Report Type: 
  Country: None (occurrence: None)
  Receive Date: 20100823
  Receipt Date: 20100624
  Transmission Date: 20110219
  Serious: No
  Sender: FDA-Public Use
  Company Number: 014757

PATIENT
  Age: 23 Year
  Sex: Male
  Weight: 165 kg

DRUGS (2)
  1. CIMZIA [Suspect]
     Indication: CROHN'S DISEASE
     Dosage: (DOSE SUBCUTANEOUS)
     Route: 058
     Dates: start: 20091201, end: 20091201
  2. IMURAN [Concomitant]

REACTIONS (3)
  - DIZZINESS [None]
  - GAIT DISTURBANCE [None]
  - MUSCULAR WEAKNESS [None]
